FAERS Safety Report 4744314-4 (Version None)
Quarter: 2005Q3

REPORT INFORMATION
  Report Type: 
  Country: None (occurrence: None)
  Receive Date: 20050812
  Receipt Date: 20050314
  Transmission Date: 20060218
  Serious: Yes (Hospitalization, Disabling)
  Sender: FDA-Public Use
  Company Number: US-MERCK-0503USA02960

PATIENT
  Age: 58 Year
  Sex: Male
  Weight: 99 kg

DRUGS (6)
  1. VIOXX [Suspect]
     Indication: ARTHRITIS
     Route: 048
     Dates: end: 20031017
  2. GLUCOPHAGE [Concomitant]
     Route: 065
  3. ADALAT [Concomitant]
     Route: 065
     Dates: start: 20020101
  4. NEURONTIN [Concomitant]
     Indication: BACK PAIN
     Route: 065
     Dates: start: 20000101
  5. NEURONTIN [Concomitant]
     Indication: MUSCLE SPASMS
     Route: 065
     Dates: start: 20000101
  6. NEXIUM [Concomitant]
     Route: 065
     Dates: start: 20000101, end: 20030101

REACTIONS (3)
  - BACK PAIN [None]
  - EMOTIONAL DISTRESS [None]
  - MYOCARDIAL INFARCTION [None]
